FAERS Safety Report 12282458 (Version 1)
Quarter: 2016Q2

REPORT INFORMATION
  Report Type: Report from Study
  Country: US (occurrence: US)
  Receive Date: 20160419
  Receipt Date: 20160419
  Transmission Date: 20160815
  Serious: No
  Sender: FDA-Public Use
  Company Number: US-MDT-ADR-2016-00132

PATIENT
  Age: 69 Year
  Sex: Male

DRUGS (2)
  1. MORPHINE [Suspect]
     Active Substance: MORPHINE
     Dosage: 7.358 MG/DAY
     Route: 037
  2. BACLOFEN. [Suspect]
     Active Substance: BACLOFEN
     Dosage: 41.39 MCG/DAY
     Route: 032

REACTIONS (3)
  - Constipation [Not Recovered/Not Resolved]
  - Sedation [Not Recovered/Not Resolved]
  - Adverse drug reaction [Not Recovered/Not Resolved]
